FAERS Safety Report 11225187 (Version 2)
Quarter: 2015Q3

REPORT INFORMATION
  Report Type: Spontaneous
  Country: TH (occurrence: TH)
  Receive Date: 20150629
  Receipt Date: 20150922
  Transmission Date: 20151125
  Serious: Yes (Death, Life-Threatening, Hospitalization, Other)
  Sender: FDA-Public Use
  Company Number: TH-BRISTOL-MYERS SQUIBB COMPANY-BMS-2015-040444

PATIENT
  Age: 73 Year
  Sex: Male

DRUGS (2)
  1. PHENOBARBITAL. [Suspect]
     Active Substance: PHENOBARBITAL
     Indication: SEIZURE
     Dosage: 180 MG, QD
     Route: 065
  2. SPRYCEL [Suspect]
     Active Substance: DASATINIB
     Indication: CHRONIC MYELOID LEUKAEMIA
     Dosage: 20 MG, UNK
     Route: 065
     Dates: start: 201411

REACTIONS (5)
  - Respiratory failure [Fatal]
  - Coma [Unknown]
  - Malignant neoplasm progression [Unknown]
  - Pneumonia [Unknown]
  - Seizure [Unknown]
